FAERS Safety Report 17904666 (Version 2)
Quarter: 2020Q3

REPORT INFORMATION
  Report Type: Spontaneous
  Country: IN (occurrence: IN)
  Receive Date: 20200617
  Receipt Date: 20200710
  Transmission Date: 20201103
  Serious: Yes (Death, Other)
  Sender: FDA-Public Use
  Company Number: IN-GLAXOSMITHKLINE-IN2020APC099328

PATIENT
  Sex: Male

DRUGS (2)
  1. SUPACEF [Suspect]
     Active Substance: CEFUROXIME
     Dosage: UNK, 7 VIALS
     Dates: start: 20200224, end: 202004
  2. SUPACEF [Suspect]
     Active Substance: CEFUROXIME
     Indication: PRODUCT USED FOR UNKNOWN INDICATION
     Dosage: 1.5 G

REACTIONS (1)
  - Cardiac arrest [Fatal]
